FAERS Safety Report 10444563 (Version 1)
Quarter: 2014Q3

REPORT INFORMATION
  Report Type: Spontaneous
  Country: US (occurrence: None)
  Receive Date: 20140909
  Receipt Date: 20140909
  Transmission Date: 20150326
  Serious: Yes (Hospitalization)
  Sender: FDA-Public Use
  Company Number: None

PATIENT
  Age: 60 Year
  Sex: Male
  Weight: 94.35 kg

DRUGS (1)
  1. AMANTADINE [Suspect]
     Active Substance: AMANTADINE
     Indication: ANORGASMIA
     Dosage: 1 PILL TWICE DAILY TAKEN BY MOUTH
     Route: 048
     Dates: start: 20140803, end: 20140807

REACTIONS (12)
  - Hallucination, visual [None]
  - Mania [None]
  - Eating disorder [None]
  - Libido decreased [None]
  - Psychotic disorder [None]
  - Confusional state [None]
  - Fall [None]
  - Aggression [None]
  - Memory impairment [None]
  - Balance disorder [None]
  - Hallucination, auditory [None]
  - Paranoia [None]

NARRATIVE: CASE EVENT DATE: 20140810
